FAERS Safety Report 24093508 (Version 1)
Quarter: 2024Q3

REPORT INFORMATION
  Report Type: Spontaneous
  Country: US (occurrence: US)
  Receive Date: 20240715
  Receipt Date: 20240715
  Transmission Date: 20241017
  Serious: No
  Sender: LUNDBECK
  Company Number: US-LUNDBECK-DKLU4001013

PATIENT

DRUGS (3)
  1. SABRIL [Suspect]
     Active Substance: VIGABATRIN
     Indication: Epilepsy
     Dosage: 750 003
  2. SABRIL [Suspect]
     Active Substance: VIGABATRIN
     Indication: Seizure
     Dosage: 1000 003
  3. SABRIL [Suspect]
     Active Substance: VIGABATRIN
     Dosage: 1000 003

REACTIONS (1)
  - Somnolence [Not Recovered/Not Resolved]
